FAERS Safety Report 5081313-X (Version None)
Quarter: 2006Q3

REPORT INFORMATION
  Report Type: 
  Country: None (occurrence: None)
  Receive Date: 20060814
  Receipt Date: 20060814
  Transmission Date: 20061208
  Serious: Yes (Life-Threatening, Other)
  Sender: FDA-Public Use
  Company Number: None

PATIENT
  Sex: Female
  Weight: 65.7716 kg

DRUGS (1)
  1. ALESSE [Suspect]
     Indication: MENOPAUSE

REACTIONS (2)
  - BREAST CANCER [None]
  - MAMMOGRAM ABNORMAL [None]
